FAERS Safety Report 10053695 (Version 1)
Quarter: 2014Q2

REPORT INFORMATION
  Report Type: Spontaneous
  Country: US (occurrence: US)
  Receive Date: 20140402
  Receipt Date: 20140402
  Transmission Date: 20141212
  Serious: Yes (Other)
  Sender: FDA-Public Use
  Company Number: US-GE HEALTHCARE MEDICAL DIAGNOSTICS-OMPQ-PR-1403S-0313

PATIENT
  Age: 42 Year
  Sex: Male

DRUGS (3)
  1. OMNIPAQUE [Suspect]
     Indication: FLANK PAIN
     Route: 042
     Dates: start: 20140218, end: 20140218
  2. OMNIPAQUE [Suspect]
     Indication: ABDOMINAL PAIN
  3. OMNIPAQUE [Suspect]
     Indication: DIAGNOSTIC PROCEDURE

REACTIONS (2)
  - Throat irritation [Recovered/Resolved]
  - Eye pruritus [Recovered/Resolved]
